FAERS Safety Report 25439856 (Version 1)
Quarter: 2025Q2

REPORT INFORMATION
  Report Type: Spontaneous
  Country: US (occurrence: None)
  Receive Date: 20250615
  Receipt Date: 20250615
  Transmission Date: 20250716
  Serious: Yes (Other)
  Sender: FDA-CTU
  Company Number: None

PATIENT
  Age: 4 Year
  Sex: Female
  Weight: 21.6 kg

DRUGS (1)
  1. AZITHROMYCIN [Suspect]
     Active Substance: AZITHROMYCIN
     Indication: Pneumonia
     Dosage: 3 TEASPOON(S)  3 TIMES A DAY ORAL ?
     Route: 048
     Dates: start: 20241127, end: 20241130

REACTIONS (1)
  - Haematochezia [None]

NARRATIVE: CASE EVENT DATE: 20241127
